FAERS Safety Report 7937772-5 (Version None)
Quarter: 2011Q4

REPORT INFORMATION
  Report Type: 
  Country: None (occurrence: None)
  Receive Date: 20111123
  Receipt Date: 20111118
  Transmission Date: 20120403
  Serious: Yes (Life-Threatening, Hospitalization)
  Sender: FDA-Public Use
  Company Number: PHHY2011ES101324

PATIENT
  Age: 69 Year
  Sex: Male

DRUGS (4)
  1. VOLTAREN [Suspect]
     Indication: PAIN
     Dosage: 75 MG, PRN
     Route: 030
     Dates: start: 20110814, end: 20110831
  2. ENANTYUM [Suspect]
     Indication: PAIN
     Dosage: 225 MG, TID
     Route: 048
     Dates: start: 20110820, end: 20110905
  3. CIPROFLOXACIN [Suspect]
     Indication: URINARY TRACT INFECTION
     Dosage: UNK
     Route: 048
     Dates: start: 20010901, end: 20110905
  4. VOLTAREN [Suspect]
     Dosage: 150 MG, TID
     Route: 048
     Dates: start: 20110831, end: 20110904

REACTIONS (10)
  - GENERAL PHYSICAL HEALTH DETERIORATION [None]
  - HYPERKALAEMIA [None]
  - UROSEPSIS [None]
  - VOMITING [None]
  - RENAL FAILURE ACUTE [None]
  - ASTHENIA [None]
  - HAEMODIALYSIS [None]
  - BLOOD CREATININE INCREASED [None]
  - SPEECH DISORDER [None]
  - URINARY TRACT INFECTION [None]
